FAERS Safety Report 25663359 (Version 1)
Quarter: 2025Q3

REPORT INFORMATION
  Report Type: Other
  Country: CN (occurrence: CN)
  Receive Date: 20250811
  Receipt Date: 20250811
  Transmission Date: 20251021
  Serious: Yes (Life-Threatening)
  Sender: CHIESI
  Company Number: CN-CHIESI-2025CHF05531

PATIENT
  Age: 0 Year
  Sex: Female
  Weight: 1.5 kg

DRUGS (1)
  1. CUROSURF [Suspect]
     Active Substance: PORACTANT ALFA
     Indication: Neonatal respiratory distress syndrome
     Dosage: 240 MILLIGRAM, QD
     Route: 007
     Dates: start: 20250802, end: 20250802

REACTIONS (1)
  - Blood pressure decreased [Recovering/Resolving]

NARRATIVE: CASE EVENT DATE: 20250802
